FAERS Safety Report 6773283-0 (Version None)
Quarter: 2010Q2

REPORT INFORMATION
  Report Type: 
  Country: None (occurrence: None)
  Receive Date: 20100614
  Receipt Date: 20100607
  Transmission Date: 20101027
  Serious: Yes (Other)
  Sender: FDA-Public Use
  Company Number: 2010SP023901

PATIENT
  Age: 31 Year
  Sex: Female

DRUGS (6)
  1. SAPHRIS [Suspect]
     Indication: SCHIZOAFFECTIVE DISORDER BIPOLAR TYPE
     Dosage: 5 MG;BID;SL, 15 MG;QD;SL
     Route: 060
     Dates: end: 20100503
  2. SAPHRIS [Suspect]
     Indication: SCHIZOAFFECTIVE DISORDER BIPOLAR TYPE
     Dosage: 5 MG;BID;SL, 15 MG;QD;SL
     Route: 060
     Dates: start: 20100430
  3. INVEGA (CON.) [Concomitant]
  4. KLONOPIN (CON.) [Concomitant]
  5. AMBIEN (CON.) [Concomitant]
  6. BUSPAR (CON.) [Concomitant]

REACTIONS (3)
  - AGITATION [None]
  - PARANOIA [None]
  - UNEVALUABLE EVENT [None]
